FAERS Safety Report 4281364-9 (Version None)
Quarter: 2004Q1

REPORT INFORMATION
  Report Type: 
  Country: None (occurrence: None)
  Receive Date: 20040108
  Receipt Date: 20030204
  Transmission Date: 20041129
  Serious: Yes (Other)
  Sender: FDA-Public Use
  Company Number: HQWYE308710FEB03

PATIENT
  Sex: Female

DRUGS (1)
  1. PREMPRO [Suspect]
     Dosage: 0.625MG/ UNSPECIFIED, ORAL
     Route: 048
     Dates: start: 19980101

REACTIONS (7)
  - ABDOMINAL PAIN [None]
  - CHLOASMA [None]
  - DEPRESSION [None]
  - DIZZINESS [None]
  - HEADACHE [None]
  - MYOCARDIAL INFARCTION [None]
  - SYNCOPE [None]
